FAERS Safety Report 4364882-4 (Version None)
Quarter: 2004Q2

REPORT INFORMATION
  Report Type: 
  Country: None (occurrence: None)
  Receive Date: 20040521
  Receipt Date: 20040504
  Transmission Date: 20050107
  Serious: Yes (Hospitalization, Other)
  Sender: FDA-Public Use
  Company Number: USA031049630

PATIENT
  Age: 87 Year
  Sex: Female

DRUGS (10)
  1. FORTEO [Suspect]
     Indication: OSTEOPOROSIS
     Dosage: 20 UG/1 DAY
     Dates: start: 20031003, end: 20031201
  2. LIPITOR [Concomitant]
  3. NORVASC [Concomitant]
  4. BENICAR (BENICAR) [Concomitant]
  5. ATENOLOL [Concomitant]
  6. LEXAPRO [Concomitant]
  7. IMDUR [Concomitant]
  8. AMBIEN [Concomitant]
  9. TYLENOL [Concomitant]
  10. ULTRACET [Concomitant]

REACTIONS (10)
  - ARTHRALGIA [None]
  - BACK PAIN [None]
  - DIZZINESS [None]
  - FALL [None]
  - FEELING HOT [None]
  - HIP FRACTURE [None]
  - MONOPLEGIA [None]
  - PAIN IN EXTREMITY [None]
  - PELVIC FRACTURE [None]
  - PHARMACEUTICAL PRODUCT COMPLAINT [None]
